FAERS Safety Report 8542406-5 (Version None)
Quarter: 2012Q3

REPORT INFORMATION
  Report Type: 
  Country: None (occurrence: None)
  Receive Date: 20120726
  Receipt Date: 20110815
  Transmission Date: 20120928
  Serious: Yes (Hospitalization)
  Sender: FDA-Public Use
  Company Number: US-ASTRAZENECA-2011SE48873

PATIENT
  Age: 60 Year
  Sex: Female
  Weight: 48.1 kg

DRUGS (5)
  1. MULTI-VITAMINS [Concomitant]
     Dates: start: 20110101, end: 20110101
  2. VITAMIN D [Concomitant]
  3. SEROQUEL [Suspect]
     Indication: DEPRESSION
     Route: 048
     Dates: start: 20110101, end: 20110101
  4. SEROQUEL [Suspect]
     Route: 048
  5. LYRICA [Concomitant]

REACTIONS (3)
  - HALLUCINATION, AUDITORY [None]
  - NERVOUSNESS [None]
  - INSOMNIA [None]
